FAERS Safety Report 26042860 (Version 3)
Quarter: 2025Q4

REPORT INFORMATION
  Report Type: Spontaneous
  Country: EU (occurrence: EU)
  Receive Date: 20251113
  Receipt Date: 20251218
  Transmission Date: 20260117
  Serious: Yes (Hospitalization, Congenital Anomaly, Other)
  Sender: MYLAN
  Company Number: EU-ACTELION-A-CH2016-131573

PATIENT
  Age: 4 Month
  Sex: Female
  Weight: 1.345 kg

DRUGS (20)
  1. SILDENAFIL [Suspect]
     Active Substance: SILDENAFIL
     Indication: Product used for unknown indication
     Dosage: 20 MILLIGRAM, TID (20 MG, TID)
  2. SILDENAFIL [Suspect]
     Active Substance: SILDENAFIL
     Dosage: 20 MILLIGRAM, TID (20 MG, TID)
     Dates: start: 20150105, end: 20150323
  3. SILDENAFIL [Suspect]
     Active Substance: SILDENAFIL
     Dosage: 20 MILLIGRAM, TID (20 MG, TID)
     Dates: start: 20150416, end: 20151010
  4. SILDENAFIL [Suspect]
     Active Substance: SILDENAFIL
     Dosage: 60 MILLIGRAM, QD
  5. AZATHIOPRINE [Suspect]
     Active Substance: AZATHIOPRINE
     Indication: Product used for unknown indication
     Dosage: UNK, QD (50 UNK, QD 1 IN 1 DAY)
  6. AZATHIOPRINE [Suspect]
     Active Substance: AZATHIOPRINE
     Dosage: 50 MILLIGRAM, QD (50 UNK, QD 1 IN 1 DAY)
     Dates: start: 20150416, end: 20151010
  7. PREDNISOLONE [Suspect]
     Active Substance: PREDNISOLONE
     Indication: Systemic lupus erythematosus
     Dosage: UNK
     Dates: start: 20150727, end: 20150907
  8. PREDNISOLONE [Suspect]
     Active Substance: PREDNISOLONE
     Dosage: 5 MILLIGRAM, QD
     Dates: start: 20150416, end: 20151010
  9. APIXABAN [Suspect]
     Active Substance: APIXABAN
     Indication: Product used for unknown indication
     Dosage: UNK
  10. OPSUMIT [Suspect]
     Active Substance: MACITENTAN
     Indication: Pulmonary arterial hypertension
     Dosage: 10 MILLIGRAM, QD (10 MG, QD)
     Dates: start: 20141124, end: 20150323
  11. OPSUMIT [Suspect]
     Active Substance: MACITENTAN
     Dosage: 10 MILLIGRAM, QD (10 MG, QD)
     Dates: start: 20150221, end: 20150330
  12. VENTAVIS [Suspect]
     Active Substance: ILOPROST
     Indication: Product used for unknown indication
     Dosage: UNK
  13. TINZAPARIN [Suspect]
     Active Substance: TINZAPARIN
     Indication: Pulmonary arterial hypertension
     Dosage: UNK
  14. TINZAPARIN [Suspect]
     Active Substance: TINZAPARIN
     Dosage: 20000 [IE/D ]
     Dates: start: 20150416, end: 20151010
  15. HYDROXYCHLOROQUINE [Suspect]
     Active Substance: HYDROXYCHLOROQUINE
     Indication: Systemic lupus erythematosus
     Dosage: UNK
     Dates: start: 20150727, end: 20150907
  16. HYDROXYCHLOROQUINE [Suspect]
     Active Substance: HYDROXYCHLOROQUINE
     Dosage: 200 MILLIGRAM, QD
     Dates: start: 20150428, end: 20151010
  17. TREPROSTINIL [Suspect]
     Active Substance: TREPROSTINIL
     Indication: Product used for unknown indication
     Dosage: UNK
  18. Femibion [Concomitant]
     Indication: Prophylaxis of neural tube defect
     Dosage: UNK
     Dates: start: 20150330, end: 20150428
  19. BETAMETHASONE [Concomitant]
     Active Substance: BETAMETHASONE
     Indication: Maternal therapy to enhance foetal lung maturity
     Dosage: UNK
     Dates: start: 20150916, end: 20150917
  20. ATOSIBAN [Concomitant]
     Active Substance: ATOSIBAN
     Indication: Tocolysis
     Dosage: UNK
     Dates: start: 20151010, end: 20151010

REACTIONS (14)
  - Premature baby [Unknown]
  - Neonatal respiratory distress syndrome [Recovered/Resolved]
  - Hypotonia [Recovered/Resolved]
  - Bradycardia [Recovered/Resolved]
  - Osteochondrodysplasia [Unknown]
  - Cyanosis [Recovered/Resolved]
  - Foetal growth restriction [Unknown]
  - Congenital musculoskeletal disorder [Unknown]
  - Multiple epiphyseal dysplasia [Not Recovered/Not Resolved]
  - Skeletal dysplasia [Not Recovered/Not Resolved]
  - Brachydactyly [Not Recovered/Not Resolved]
  - Posture abnormal [Unknown]
  - Chondrodysplasia punctata [Unknown]
  - Foetal exposure timing unspecified [Unknown]

NARRATIVE: CASE EVENT DATE: 20151010
